FAERS Safety Report 5370075-4 (Version None)
Quarter: 2007Q2

REPORT INFORMATION
  Report Type: 
  Country: None (occurrence: None)
  Receive Date: 20070615
  Receipt Date: 20070329
  Transmission Date: 20071010
  Serious: Yes (Other)
  Sender: FDA-Public Use
  Company Number: 2007026412

PATIENT
  Sex: Male

DRUGS (1)
  1. ERAXIS [Suspect]
     Indication: CANDIDIASIS
     Dosage: 150 MG (150 MG, 1 IN 1 D)
     Dates: start: 20070316

REACTIONS (1)
  - THROMBOCYTOPENIA [None]
